FAERS Safety Report 4695387-9 (Version None)
Quarter: 2005Q2

REPORT INFORMATION
  Report Type: 
  Country: None (occurrence: None)
  Receive Date: 20050124
  Receipt Date: 20050124
  Transmission Date: 20051028
  Serious: No
  Sender: FDA-Public Use
  Company Number: None

PATIENT
  Sex: Female
  Weight: 95.2554 kg

DRUGS (2)
  1. LORCET-HD [Suspect]
     Dosage: THREE TIMES A DAY
  2. VICODIN ES [Suspect]
     Dosage: FOUR TIMES A DAY AS NEEDED

REACTIONS (3)
  - DRUG INEFFECTIVE [None]
  - PHARMACEUTICAL PRODUCT COMPLAINT [None]
  - REACTION TO COLOURING [None]
